FAERS Safety Report 15753762 (Version 1)
Quarter: 2018Q4

REPORT INFORMATION
  Report Type: Spontaneous
  Country: US (occurrence: US)
  Receive Date: 20181222
  Receipt Date: 20181222
  Transmission Date: 20190205
  Serious: No
  Sender: FDA-Public Use
  Company Number: US-DRREDDYS-USA/USA/18/0105942

PATIENT

DRUGS (1)
  1. NICOTINE. [Suspect]
     Active Substance: NICOTINE
     Indication: SMOKING CESSATION THERAPY
     Dosage: TRANSDERMAL NICOTINE REPLACEMENT PATCH STAGE 1(21MG)-CVS 14CT-133177
     Route: 062
     Dates: start: 20181130

REACTIONS (1)
  - Dysgeusia [Not Recovered/Not Resolved]
